FAERS Safety Report 6035468-0 (Version None)
Quarter: 2009Q1

REPORT INFORMATION
  Report Type: 
  Country: None (occurrence: None)
  Receive Date: 20090112
  Receipt Date: 20090112
  Transmission Date: 20090719
  Serious: No
  Sender: FDA-Public Use
  Company Number: None

PATIENT
  Age: 62 Year
  Sex: Male
  Weight: 75 kg

DRUGS (1)
  1. NORFLOXACIN [Suspect]
     Indication: URINARY TRACT INFECTION
     Dosage: 2 DAY PO
     Route: 048
     Dates: start: 20081223, end: 20081231

REACTIONS (2)
  - CONDITION AGGRAVATED [None]
  - HYPERTENSION [None]
